FAERS Safety Report 5043622-X (Version None)
Quarter: 2006Q3

REPORT INFORMATION
  Report Type: 
  Country: None (occurrence: None)
  Receive Date: 20060706
  Receipt Date: 20060628
  Transmission Date: 20061208
  Serious: Yes (Hospitalization)
  Sender: FDA-Public Use
  Company Number: PHEH2006US08376

PATIENT
  Age: 22 Year
  Sex: Female
  Weight: 82.494 kg

DRUGS (5)
  1. TEGRETOL-XR [Suspect]
     Indication: CONVULSION
     Dosage: 400 MG, BID
     Route: 048
     Dates: start: 20010101
  2. LAMICTAL [Suspect]
     Indication: CONVULSION
     Dosage: 100 MG, BID
     Route: 048
     Dates: start: 20060428
  3. FOLIC ACID [Concomitant]
  4. ZINC [Concomitant]
  5. SELENIUM SULFIDE [Concomitant]

REACTIONS (3)
  - ABORTION SPONTANEOUS [None]
  - HAEMATURIA [None]
  - URINE ANALYSIS ABNORMAL [None]
